FAERS Safety Report 11173945 (Version 2)
Quarter: 2015Q3

REPORT INFORMATION
  Report Type: Report from Study
  Country: US (occurrence: US)
  Receive Date: 20150609
  Receipt Date: 20150727
  Transmission Date: 20151125
  Serious: No
  Sender: FDA-Public Use
  Company Number: US-AMGEN-USASL2015053432

PATIENT
  Age: 51 Year
  Sex: Female

DRUGS (1)
  1. ENBREL [Suspect]
     Active Substance: ETANERCEPT
     Indication: RHEUMATOID ARTHRITIS
     Dosage: 50 MG, QWK
     Route: 065
     Dates: start: 20141201, end: 201507

REACTIONS (9)
  - Injection site pain [Recovering/Resolving]
  - Feeling hot [Unknown]
  - Injection site rash [Not Recovered/Not Resolved]
  - Mobility decreased [Recovered/Resolved]
  - Injection site reaction [Recovering/Resolving]
  - Rash [Unknown]
  - Injection site swelling [Not Recovered/Not Resolved]
  - Injection site warmth [Recovered/Resolved]
  - Peripheral swelling [Unknown]

NARRATIVE: CASE EVENT DATE: 20141201
